FAERS Safety Report 9620818 (Version 2)
Quarter: 2013Q4

REPORT INFORMATION
  Report Type: Other
  Country: CA (occurrence: CA)
  Receive Date: 20131015
  Receipt Date: 20131126
  Transmission Date: 20140711
  Serious: Yes (Life-Threatening, Hospitalization)
  Sender: FDA-Public Use
  Company Number: CA-BRISTOL-MYERS SQUIBB COMPANY-19531011

PATIENT
  Age: 68 Year
  Sex: Male
  Weight: 80 kg

DRUGS (9)
  1. METFORMIN HCL TABS 500MG [Suspect]
     Dosage: 7 TABS
  2. AMLODIPINE [Suspect]
     Dosage: 10 MG TABLETS
  3. ETHANOL [Suspect]
  4. ACETYLSALICYLIC ACID [Concomitant]
  5. CLONAZEPAM [Concomitant]
  6. GLYBURIDE [Concomitant]
  7. IRBESARTAN [Concomitant]
  8. TAMSULOSIN [Concomitant]
  9. VITAMIN B12 [Concomitant]

REACTIONS (4)
  - Shock [Recovered/Resolved]
  - Metabolic acidosis [Recovered/Resolved]
  - Suicide attempt [Recovered/Resolved]
  - Overdose [Unknown]
